FAERS Safety Report 8300462-3 (Version None)
Quarter: 2012Q2

REPORT INFORMATION
  Report Type: 
  Country: None (occurrence: None)
  Receive Date: 20120411
  Receipt Date: 20120404
  Transmission Date: 20120825
  Serious: Yes (Other)
  Sender: FDA-Public Use
  Company Number: MPS1-1000668

PATIENT
  Age: 7 Year
  Sex: Male

DRUGS (1)
  1. ALDURAZYME [Suspect]
     Indication: MUCOPOLYSACCHARIDOSIS
     Dosage: UNK, INTRAVENOUS
     Route: 042

REACTIONS (3)
  - CONVULSION [None]
  - VOMITING [None]
  - DYSPNOEA [None]
